FAERS Safety Report 5574843-5 (Version None)
Quarter: 2007Q4

REPORT INFORMATION
  Report Type: 
  Country: None (occurrence: None)
  Receive Date: 20071221
  Receipt Date: 20071221
  Transmission Date: 20080405
  Serious: Yes (Hospitalization)
  Sender: FDA-Public Use
  Company Number: None

PATIENT
  Age: 76 Year
  Sex: Male
  Weight: 79.4 kg

DRUGS (1)
  1. RILUTEK [Suspect]

REACTIONS (3)
  - COUGH [None]
  - DYSPNOEA [None]
  - HEPATITIS [None]
